FAERS Safety Report 13927297 (Version 1)
Quarter: 2017Q3

REPORT INFORMATION
  Report Type: Spontaneous
  Country: US (occurrence: US)
  Receive Date: 20170831
  Receipt Date: 20170831
  Transmission Date: 20171127
  Serious: No
  Sender: FDA-Public Use
  Company Number: US-009507513-1708USA004570

PATIENT
  Age: 67 Year
  Sex: Female

DRUGS (3)
  1. KEYTRUDA [Suspect]
     Active Substance: PEMBROLIZUMAB
     Indication: NON-SMALL CELL LUNG CANCER
     Dosage: 200 MG, EVERY THREE WEEKS
     Route: 042
     Dates: start: 201701
  2. SIMVASTATIN TABLETS, USP [Concomitant]
     Active Substance: SIMVASTATIN
     Dosage: AS NEEDED
  3. TYLENOL WITH CODEINE #3 (ACETAMINOPHEN (+) CODEINE PHOSPHATE) [Concomitant]
     Dosage: AS NEEDED

REACTIONS (3)
  - Cough [Recovering/Resolving]
  - Weight decreased [Recovering/Resolving]
  - Cerebral disorder [Recovering/Resolving]

NARRATIVE: CASE EVENT DATE: 201708
